FAERS Safety Report 21371065 (Version 1)
Quarter: 2022Q3

REPORT INFORMATION
  Report Type: Spontaneous
  Country: US (occurrence: US)
  Receive Date: 20220923
  Receipt Date: 20220923
  Transmission Date: 20221026
  Serious: No
  Sender: FDA-Public Use
  Company Number: US-GILEAD-2022-0598655

PATIENT
  Sex: Male

DRUGS (5)
  1. EPCLUSA [Suspect]
     Active Substance: SOFOSBUVIR\VELPATASVIR
     Indication: Chronic hepatitis C
     Dosage: 1 DOSAGE FORM, QD
     Route: 048
  2. COZAAR [Concomitant]
     Active Substance: LOSARTAN POTASSIUM
  3. ALDACTONE [Concomitant]
     Active Substance: SPIRONOLACTONE
  4. NOVOLIN 70/30 [Concomitant]
     Active Substance: INSULIN HUMAN
  5. BUMEX [Concomitant]
     Active Substance: BUMETANIDE

REACTIONS (1)
  - Drug ineffective [Unknown]
